FAERS Safety Report 14775272 (Version 1)
Quarter: 2018Q2

REPORT INFORMATION
  Report Type: Report from Study
  Country: GB (occurrence: GB)
  Receive Date: 20180418
  Receipt Date: 20180418
  Transmission Date: 20180711
  Serious: Yes (Other)
  Sender: FDA-Public Use
  Company Number: PHHY2018GB064640

PATIENT
  Sex: Female

DRUGS (3)
  1. OMNITROPE [Suspect]
     Active Substance: SOMATROPIN
     Indication: HYPOPITUITARISM
  2. OMNITROPE [Suspect]
     Active Substance: SOMATROPIN
     Indication: MACROPROLACTINAEMIA
     Dosage: 0.5 MG, QD
     Route: 065
     Dates: start: 201312
  3. CABERGOLINE. [Concomitant]
     Active Substance: CABERGOLINE
     Indication: PRODUCT USED FOR UNKNOWN INDICATION
     Route: 065

REACTIONS (4)
  - Thyroid disorder [Unknown]
  - Brain neoplasm [Unknown]
  - Dyspepsia [Unknown]
  - Drug prescribing error [Unknown]
